FAERS Safety Report 15315257 (Version 1)
Quarter: 2018Q3

REPORT INFORMATION
  Report Type: Spontaneous
  Country: US (occurrence: US)
  Receive Date: 20180815
  Receipt Date: 20180815
  Transmission Date: 20181010
  Serious: Yes (Other)
  Sender: FDA-Public Use
  Company Number: None

PATIENT
  Age: 29 Year
  Sex: Female

DRUGS (1)
  1. VIVITROL [Suspect]
     Active Substance: NALTREXONE
     Route: 030
     Dates: start: 20180327, end: 20180425

REACTIONS (2)
  - Myalgia [None]
  - Fatigue [None]

NARRATIVE: CASE EVENT DATE: 20180430
